FAERS Safety Report 11091274 (Version 1)
Quarter: 2015Q2

REPORT INFORMATION
  Report Type: Spontaneous
  Country: US (occurrence: None)
  Receive Date: 20150504
  Receipt Date: 20150504
  Transmission Date: 20150821
  Serious: No
  Sender: FDA-Public Use
  Company Number: None

PATIENT
  Age: 83 Year
  Sex: Male
  Weight: 63.5 kg

DRUGS (6)
  1. BISOPROLOL FUMAR [Concomitant]
  2. NAMENDA [Suspect]
     Active Substance: MEMANTINE HYDROCHLORIDE
     Indication: DEMENTIA
     Dosage: 2 PILLS  TWICE DAILY  TAKEN BY MOUTH
     Route: 048
     Dates: start: 20150327, end: 20150501
  3. TAMSULOSIN [Concomitant]
     Active Substance: TAMSULOSIN
  4. ATORVASTAT [Concomitant]
  5. FENOMORATE [Concomitant]
  6. MULTI VITAMIN [Concomitant]
     Active Substance: VITAMINS

REACTIONS (5)
  - Drug ineffective [None]
  - Fatigue [None]
  - Hallucination [None]
  - Hypersomnia [None]
  - Confusional state [None]

NARRATIVE: CASE EVENT DATE: 20150501
